FAERS Safety Report 7903685-8 (Version None)
Quarter: 2011Q4

REPORT INFORMATION
  Report Type: 
  Country: None (occurrence: None)
  Receive Date: 20111027
  Receipt Date: 20110722
  Transmission Date: 20120403
  Serious: Yes (Hospitalization)
  Sender: FDA-Public Use
  Company Number: 2011-2515

PATIENT
  Age: 11 Year
  Sex: Female
  Weight: 19.3 kg

DRUGS (1)
  1. INCRELEX [Suspect]
     Indication: GROWTH HORMONE DEFICIENCY
     Dosage: 46 UNITS (46 UNITS,1 IN 1 D),SUBCUTANEOUS
     Route: 058
     Dates: start: 20110720, end: 20110722

REACTIONS (2)
  - GRAND MAL CONVULSION [None]
  - HYPOGLYCAEMIA [None]
